FAERS Safety Report 14172694 (Version 1)
Quarter: 2017Q4

REPORT INFORMATION
  Report Type: Spontaneous
  Country: HR (occurrence: HR)
  Receive Date: 20171109
  Receipt Date: 20171109
  Transmission Date: 20180321
  Serious: Yes (Other)
  Sender: FDA-Public Use
  Company Number: HR-ASTRAZENECA-2017SF13364

PATIENT
  Sex: Female

DRUGS (18)
  1. FULVESTRANT. [Suspect]
     Active Substance: FULVESTRANT
     Indication: BREAST CANCER METASTATIC
     Route: 030
     Dates: start: 201204
  2. EXEMESTANE. [Suspect]
     Active Substance: EXEMESTANE
     Indication: BREAST CANCER METASTATIC
     Route: 065
     Dates: start: 201303, end: 201403
  3. GEMCITABINE [Suspect]
     Active Substance: GEMCITABINE\GEMCITABINE HYDROCHLORIDE
     Indication: BREAST CANCER METASTATIC
     Route: 065
     Dates: start: 201611, end: 201703
  4. LETROZOLE. [Suspect]
     Active Substance: LETROZOLE
     Indication: TOOTH EXTRACTION
     Route: 065
     Dates: start: 201404, end: 201409
  5. MEGACE [Suspect]
     Active Substance: MEGESTROL ACETATE
     Indication: BREAST CANCER METASTATIC
     Route: 065
     Dates: start: 201409, end: 201412
  6. TAMOXIFEN [Suspect]
     Active Substance: TAMOXIFEN
     Indication: BREAST CANCER METASTATIC
     Route: 048
     Dates: start: 201110, end: 201203
  7. CAPECITABINE. [Suspect]
     Active Substance: CAPECITABINE
     Indication: TOOTH EXTRACTION
     Route: 065
     Dates: start: 201501, end: 201611
  8. GEMCITABINE [Suspect]
     Active Substance: GEMCITABINE\GEMCITABINE HYDROCHLORIDE
     Indication: METASTASES TO BONE
     Route: 065
     Dates: start: 201611, end: 201703
  9. ZOMETA [Concomitant]
     Active Substance: ZOLEDRONIC ACID
     Indication: PRODUCT USED FOR UNKNOWN INDICATION
  10. VINORELBINE [Concomitant]
     Active Substance: VINORELBINE\VINORELBINE TARTRATE
     Indication: PRODUCT USED FOR UNKNOWN INDICATION
     Dates: start: 20170531
  11. PACLITAXEL. [Suspect]
     Active Substance: PACLITAXEL
     Indication: BREAST CANCER METASTATIC
     Route: 065
     Dates: start: 201210, end: 201302
  12. FULVESTRANT. [Suspect]
     Active Substance: FULVESTRANT
     Indication: METASTASES TO BONE
     Route: 030
     Dates: start: 201204
  13. LETROZOLE. [Suspect]
     Active Substance: LETROZOLE
     Indication: BREAST CANCER METASTATIC
     Route: 065
     Dates: start: 201404, end: 201409
  14. PACLITAXEL. [Suspect]
     Active Substance: PACLITAXEL
     Indication: TOOTH EXTRACTION
     Route: 065
     Dates: start: 201210, end: 201302
  15. CAPECITABINE. [Suspect]
     Active Substance: CAPECITABINE
     Indication: BREAST CANCER METASTATIC
     Route: 065
     Dates: start: 201501, end: 201611
  16. TAMOXIFEN [Suspect]
     Active Substance: TAMOXIFEN
     Indication: METASTASES TO BONE
     Route: 048
     Dates: start: 201110, end: 201203
  17. MEGACE [Suspect]
     Active Substance: MEGESTROL ACETATE
     Indication: METASTASES TO BONE
     Route: 065
     Dates: start: 201409, end: 201412
  18. AREDIA [Concomitant]
     Active Substance: PAMIDRONATE DISODIUM
     Indication: PRODUCT USED FOR UNKNOWN INDICATION

REACTIONS (2)
  - Malignant neoplasm progression [Not Recovered/Not Resolved]
  - Breast cancer metastatic [Not Recovered/Not Resolved]
